FAERS Safety Report 15680922 (Version 1)
Quarter: 2018Q4

REPORT INFORMATION
  Report Type: Report from Study
  Country: ES (occurrence: ES)
  Receive Date: 20181203
  Receipt Date: 20181203
  Transmission Date: 20190205
  Serious: Yes (Death, Life-Threatening, Hospitalization)
  Sender: FDA-Public Use
  Company Number: ES-JNJFOC-20181138085

PATIENT
  Age: 75 Year
  Sex: Male
  Weight: 84 kg

DRUGS (2)
  1. IBRUTINIB [Suspect]
     Active Substance: IBRUTINIB
     Indication: MANTLE CELL LYMPHOMA RECURRENT
     Route: 048
     Dates: start: 20160110, end: 20180805
  2. RITUXIMAB. [Suspect]
     Active Substance: RITUXIMAB
     Indication: MANTLE CELL LYMPHOMA RECURRENT
     Route: 065

REACTIONS (5)
  - Off label use [Recovered/Resolved]
  - Multiple organ dysfunction syndrome [Recovering/Resolving]
  - Incorrect dose administered [Recovered/Resolved]
  - Haematotoxicity [Recovering/Resolving]
  - Pulmonary sepsis [Recovering/Resolving]

NARRATIVE: CASE EVENT DATE: 20160110
